FAERS Safety Report 8029730-X (Version None)
Quarter: 2012Q1

REPORT INFORMATION
  Report Type: 
  Country: None (occurrence: None)
  Receive Date: 20120109
  Receipt Date: 20111230
  Transmission Date: 20120608
  Serious: Yes (Hospitalization)
  Sender: FDA-Public Use
  Company Number: US-BAYER-2012-001328

PATIENT
  Sex: Female
  Weight: 61.224 kg

DRUGS (5)
  1. HYOMAX-S [Concomitant]
  2. YASMIN [Suspect]
  3. VALTREX [Concomitant]
  4. NUCYNTA [Concomitant]
  5. IBUPROFEN [Concomitant]

REACTIONS (1)
  - DEEP VEIN THROMBOSIS [None]
